FAERS Safety Report 6228199-5 (Version None)
Quarter: 2009Q2

REPORT INFORMATION
  Report Type: 
  Country: None (occurrence: None)
  Receive Date: 20090612
  Receipt Date: 20090608
  Transmission Date: 20091009
  Serious: Yes (Hospitalization)
  Sender: FDA-Public Use
  Company Number: US-BIOGENIDEC-2009BI013867

PATIENT
  Age: 60 Year
  Sex: Male
  Weight: 94 kg

DRUGS (13)
  1. TYSABRI [Suspect]
     Indication: MULTIPLE SCLEROSIS
     Route: 042
     Dates: start: 20080108
  2. GLUCOTROL XL [Concomitant]
     Route: 048
  3. NIACIN [Concomitant]
     Route: 048
  4. MULTI-VITAMIN [Concomitant]
     Dosage: DOSE UNIT:1 UNKNOWN
     Route: 048
  5. VITAMIN E [Concomitant]
     Route: 048
  6. METFORMIN HYDROCHLORIDE [Concomitant]
     Route: 048
  7. MOTRIN [Concomitant]
     Indication: PAIN
     Route: 048
  8. PROTONIX [Concomitant]
     Route: 048
  9. POLIDOCANOL [Concomitant]
     Route: 048
  10. DITROPAN [Concomitant]
  11. VALIUM [Concomitant]
  12. ASPIRIN [Concomitant]
  13. VITAMIN D [Concomitant]
     Route: 048

REACTIONS (2)
  - DRUG HYPERSENSITIVITY [None]
  - GASTROENTERITIS VIRAL [None]
